FAERS Safety Report 23169845 (Version 2)
Quarter: 2023Q4

REPORT INFORMATION
  Report Type: Report from Study
  Country: US (occurrence: US)
  Receive Date: 20231110
  Receipt Date: 20231207
  Transmission Date: 20240109
  Serious: Yes (Hospitalization, Other)
  Sender: FDA-Public Use
  Company Number: US-ALXN-A202303544AA

PATIENT
  Sex: Female

DRUGS (1)
  1. ULTOMIRIS [Suspect]
     Active Substance: RAVULIZUMAB-CWVZ
     Indication: Myasthenia gravis
     Dosage: UNK
     Route: 042
     Dates: start: 20230124

REACTIONS (13)
  - Pain [Recovered/Resolved]
  - Colectomy [Recovered/Resolved with Sequelae]
  - Kidney infection [Unknown]
  - Cystitis [Unknown]
  - Haematological infection [Unknown]
  - Urinary incontinence [Unknown]
  - Photophobia [Not Recovered/Not Resolved]
  - Eye disorder [Not Recovered/Not Resolved]
  - Diplopia [Recovered/Resolved]
  - Pollakiuria [Unknown]
  - Urinary tract infection [Unknown]
  - Diarrhoea [Unknown]
  - Fatigue [Unknown]

NARRATIVE: CASE EVENT DATE: 20230913
